FAERS Safety Report 10308162 (Version 1)
Quarter: 2014Q3

REPORT INFORMATION
  Report Type: Spontaneous
  Country: US (occurrence: US)
  Receive Date: 20140716
  Receipt Date: 20140716
  Transmission Date: 20150326
  Serious: Yes (Hospitalization)
  Sender: FDA-Public Use
  Company Number: US-PFIZER INC-2014194791

PATIENT
  Age: 52 Year
  Sex: Female
  Weight: 68 kg

DRUGS (8)
  1. DIGOXIN. [Concomitant]
     Active Substance: DIGOXIN
     Dosage: 0.25 MG, 1X/DAY
  2. REVATIO [Suspect]
     Active Substance: SILDENAFIL CITRATE
     Indication: PULMONARY HYPERTENSION
     Dosage: 40 MG, 3X/DAY
     Route: 048
     Dates: end: 20140708
  3. REMODULIN [Concomitant]
     Active Substance: TREPROSTINIL
     Dosage: UNK
     Route: 042
  4. CORTISONE [Concomitant]
     Active Substance: CORTISONE\HYDROCORTISONE
     Dosage: 125 MG, 2X/DAY
  5. ALDACTONE [Concomitant]
     Active Substance: SPIRONOLACTONE
     Dosage: 200 MG, 1X/DAY
  6. LEXAPRO [Concomitant]
     Active Substance: ESCITALOPRAM OXALATE
     Dosage: 10 MG, 1X/DAY
  7. OXYGEN. [Concomitant]
     Active Substance: OXYGEN
     Dosage: UNK, 1X/DAY
  8. NEURONTIN [Concomitant]
     Active Substance: GABAPENTIN
     Dosage: 600 MG, 3X/DAY

REACTIONS (1)
  - Gallbladder disorder [Unknown]

NARRATIVE: CASE EVENT DATE: 20130718
